FAERS Safety Report 7012937-8 (Version None)
Quarter: 2010Q3

REPORT INFORMATION
  Report Type: 
  Country: None (occurrence: None)
  Receive Date: 20100924
  Receipt Date: 20100913
  Transmission Date: 20110219
  Serious: Yes (Other)
  Sender: FDA-Public Use
  Company Number: US-PFIZER INC-2010116226

PATIENT
  Sex: Female
  Weight: 57.143 kg

DRUGS (8)
  1. LYRICA [Suspect]
     Indication: FIBROMYALGIA
     Dosage: 75 MG, 2X/DAY
     Route: 048
     Dates: start: 20100629
  2. LEXAPRO [Suspect]
     Dosage: UNK
  3. PEPCID [Concomitant]
     Dosage: UNK
  4. ANACIN [Concomitant]
     Dosage: UNK
  5. ACIPHEX [Concomitant]
     Dosage: UNK
  6. NORVASC [Concomitant]
     Indication: HYPERTENSION
     Dosage: UNK
  7. POTASSIUM [Concomitant]
     Dosage: UNK
  8. ALLEGRA [Concomitant]
     Dosage: UNK

REACTIONS (15)
  - ALOPECIA [None]
  - ARTHRALGIA [None]
  - DRY EYE [None]
  - DRY MOUTH [None]
  - FATIGUE [None]
  - FEELING ABNORMAL [None]
  - MUSCULOSKELETAL PAIN [None]
  - MUSCULOSKELETAL STIFFNESS [None]
  - NASAL DRYNESS [None]
  - PAIN [None]
  - POOR QUALITY SLEEP [None]
  - PRURITUS [None]
  - RASH [None]
  - SCAB [None]
  - VITAMIN D DECREASED [None]
